FAERS Safety Report 5478536-4 (Version None)
Quarter: 2007Q2

REPORT INFORMATION
  Report Type: 
  Country: None (occurrence: None)
  Receive Date: 20070109
  Receipt Date: 20061225
  Transmission Date: 20071010
  Serious: Yes (Hospitalization)
  Sender: FDA-Public Use
  Company Number: US-KINGPHARMUSA00001-K200601628

PATIENT

DRUGS (9)
  1. ALTACE [Suspect]
     Dosage: 1.25 MG, TID
     Route: 048
  2. LASIX [Suspect]
     Dosage: 40 MG, BID
     Route: 048
     Dates: end: 20061117
  3. ALDACTAZIDE [Suspect]
     Dosage: 1 U, QD
     Dates: end: 20061117
  4. DIPIPERON [Concomitant]
     Dosage: 80 MG, UNK
     Route: 048
  5. PREVISCAN   /00789001/ [Concomitant]
     Dosage: 10 MG, UNK
     Route: 048
  6. IMOVANE [Concomitant]
     Dosage: 3.75 MG, UNK
     Route: 048
     Dates: end: 20061117
  7. TRAMADOL HCL [Concomitant]
     Dosage: 200 MG, UNK
     Route: 048
  8. SERETIDE  /01420901/ [Concomitant]
  9. MOTILYO [Concomitant]
     Dosage: 4 U, UNK
     Route: 048

REACTIONS (11)
  - ABNORMAL BEHAVIOUR [None]
  - AGGRESSION [None]
  - DEHYDRATION [None]
  - DRUG INTERACTION [None]
  - FALL [None]
  - HYPOTENSION [None]
  - HYPOTHERMIA [None]
  - MALAISE [None]
  - RENAL FAILURE ACUTE [None]
  - TRAUMATIC HAEMATOMA [None]
  - WOUND [None]
